FAERS Safety Report 24707358 (Version 1)
Quarter: 2024Q4

REPORT INFORMATION
  Report Type: Report from Study
  Country: JP (occurrence: JP)
  Receive Date: 20241206
  Receipt Date: 20241206
  Transmission Date: 20250115
  Serious: Yes (Other)
  Sender: ALEXION PHARMACEUTICALS
  Company Number: JP-ASTRAZENECA-202411GLO025807JP

PATIENT
  Age: 35 Year

DRUGS (4)
  1. GEFITINIB [Suspect]
     Active Substance: GEFITINIB
     Indication: Non-small cell lung cancer
     Route: 065
  2. GEFITINIB [Suspect]
     Active Substance: GEFITINIB
  3. GEFITINIB [Suspect]
     Active Substance: GEFITINIB
     Route: 065
  4. GEFITINIB [Suspect]
     Active Substance: GEFITINIB

REACTIONS (4)
  - Malignant neoplasm progression [Unknown]
  - Acquired gene mutation [Unknown]
  - Drug resistance [Unknown]
  - Malignant transformation [Unknown]
